FAERS Safety Report 5900505-8 (Version None)
Quarter: 2008Q3

REPORT INFORMATION
  Report Type: 
  Country: None (occurrence: None)
  Receive Date: 20080926
  Receipt Date: 20080919
  Transmission Date: 20090109
  Serious: Yes (Other)
  Sender: FDA-Public Use
  Company Number: US-PFIZER INC-2008064402

PATIENT
  Sex: Female
  Weight: 98.9 kg

DRUGS (10)
  1. CELEBREX [Suspect]
     Indication: ARTHRITIS
     Route: 048
     Dates: start: 20080716, end: 20080729
  2. PROTONIX [Concomitant]
  3. ATACAND [Concomitant]
     Indication: HYPERTENSION
  4. NORVASC [Concomitant]
     Indication: HYPERTENSION
  5. FUROSEMIDE [Concomitant]
  6. KLOR-CON [Concomitant]
  7. PROZAC [Concomitant]
  8. PERCOCET [Concomitant]
  9. VITAMIN E [Concomitant]
  10. VITAMIN B6 [Concomitant]

REACTIONS (4)
  - DIARRHOEA [None]
  - NAUSEA [None]
  - STOMACH DISCOMFORT [None]
  - VISION BLURRED [None]
